FAERS Safety Report 26056391 (Version 1)
Quarter: 2025Q4

REPORT INFORMATION
  Report Type: Other
  Country: EU (occurrence: EU)
  Receive Date: 20251118
  Receipt Date: 20251118
  Transmission Date: 20260118
  Serious: Yes (Hospitalization, Other)
  Sender: KARYOPHARM THERAPEUTICS
  Company Number: EU-KARYOPHARM-2025KPT100952

PATIENT

DRUGS (4)
  1. SELINEXOR [Suspect]
     Active Substance: SELINEXOR
     Indication: Plasma cell myeloma
     Dosage: 60 MG (LAST DOSE BEFORE EVENT WAS ON 22-SEP-2025 30 DAYS AFTER THERAPY 22-OCT-2025 )
     Route: 048
     Dates: start: 20250825, end: 20251022
  2. VELCADE [Suspect]
     Active Substance: BORTEZOMIB
     Indication: Plasma cell myeloma
     Dosage: 1.3 MG/M2 (LAST DOSE BEFORE EVENT WAS ON 15-SEP-2025 30 DAYS AFTER THERAPY 15-OCT-2025)
     Route: 058
     Dates: start: 20250825, end: 20251015
  3. DEXAMETHASONE [Suspect]
     Active Substance: DEXAMETHASONE
     Indication: Plasma cell myeloma
     Dosage: 20 MG (LAST DOSE BEFORE EVENT WAS ON 23-SEP-2025 30 DAYS AFTER THERAPY 23-OCT-2025 )
     Route: 048
     Dates: start: 20250825, end: 20251023
  4. METOPROLOL [Concomitant]
     Active Substance: METOPROLOL

REACTIONS (1)
  - Acute kidney injury [Not Recovered/Not Resolved]

NARRATIVE: CASE EVENT DATE: 20251008
